FAERS Safety Report 21610919 (Version 1)
Quarter: 2022Q4

REPORT INFORMATION
  Report Type: Spontaneous
  Country: US (occurrence: None)
  Receive Date: 20221117
  Receipt Date: 20221117
  Transmission Date: 20230113
  Serious: Yes (Other)
  Sender: FDA-Public Use
  Company Number: None

PATIENT
  Age: 35 Year
  Sex: Female
  Weight: 62.6 kg

DRUGS (2)
  1. BEBTELOVIMAB [Suspect]
     Active Substance: BEBTELOVIMAB
     Indication: COVID-19
     Dosage: OTHER FREQUENCY : ONCE;?
     Route: 040
     Dates: start: 20221116, end: 20221116
  2. Oseltamivir 75 mg [Concomitant]
     Dates: start: 20221116

REACTIONS (3)
  - Maternal drugs affecting foetus [None]
  - Foetal distress syndrome [None]
  - Caesarean section [None]

NARRATIVE: CASE EVENT DATE: 20221117
